FAERS Safety Report 15976173 (Version 3)
Quarter: 2019Q4

REPORT INFORMATION
  Report Type: Spontaneous
  Country: US (occurrence: US)
  Receive Date: 20190218
  Receipt Date: 20191017
  Transmission Date: 20200122
  Serious: No
  Sender: FDA-Public Use
  Company Number: US-PFIZER INC-2019072266

PATIENT
  Age: 70 Year
  Sex: Female
  Weight: 60.77 kg

DRUGS (3)
  1. LETROZOLE. [Concomitant]
     Active Substance: LETROZOLE
     Dosage: UNK
  2. IBRANCE [Suspect]
     Active Substance: PALBOCICLIB
     Indication: BREAST CANCER FEMALE
     Dosage: 125 MG, CYCLIC(DAYS 1-21 Q28 DAYS)
     Route: 048
     Dates: start: 2016
  3. IBRANCE [Suspect]
     Active Substance: PALBOCICLIB
     Indication: BREAST CANCER METASTATIC

REACTIONS (11)
  - Headache [Unknown]
  - Alopecia [Unknown]
  - Oral pain [Unknown]
  - Decreased appetite [Unknown]
  - Product dose omission [Unknown]
  - Anxiety [Unknown]
  - Dizziness [Unknown]
  - Irritability [Unknown]
  - Neoplasm progression [Unknown]
  - Stomatitis [Unknown]
  - Feeling abnormal [Unknown]
